FAERS Safety Report 25314714 (Version 1)
Quarter: 2025Q2

REPORT INFORMATION
  Report Type: Spontaneous
  Country: ZA (occurrence: ZA)
  Receive Date: 20250514
  Receipt Date: 20250514
  Transmission Date: 20250717
  Serious: Yes (Other)
  Sender: PFIZER
  Company Number: ZA-PFIZER INC-PV202500056595

PATIENT
  Age: 82 Year
  Sex: Female

DRUGS (10)
  1. SULFASALAZINE [Suspect]
     Active Substance: SULFASALAZINE
     Dosage: 500 MG, 2X/DAY
  2. WARFARIN [Suspect]
     Active Substance: WARFARIN
  3. OMEPRAZOLE [Suspect]
     Active Substance: OMEPRAZOLE
  4. BISOPROLOL [Suspect]
     Active Substance: BISOPROLOL
     Dosage: 5 MG, 2X/DAY
  5. LEVOTHYROXINE [Suspect]
     Active Substance: LEVOTHYROXINE
     Dosage: 150 UG, DAILY
  6. AMLODIPINE BESYLATE\PERINDOPRIL ARGININE [Suspect]
     Active Substance: AMLODIPINE BESYLATE\PERINDOPRIL ARGININE
     Dosage: UNK, DAILY (10/10MG DAILY)
  7. TRAMADOL HYDROCHLORIDE [Suspect]
     Active Substance: TRAMADOL HYDROCHLORIDE
     Dosage: 200 MG, DAILY
  8. CELEBREX [Suspect]
     Active Substance: CELECOXIB
     Dosage: 200 MG, DAILY
  9. ZOLMITRIPTAN [Suspect]
     Active Substance: ZOLMITRIPTAN
     Dosage: 10 MG, DAILY
  10. METFORMIN HYDROCHLORIDE [Suspect]
     Active Substance: METFORMIN HYDROCHLORIDE
     Dosage: 500 MG, DAILY

REACTIONS (3)
  - Abdominal neoplasm [Unknown]
  - Dyspnoea [Unknown]
  - Overweight [Unknown]
